FAERS Safety Report 7305566-X (Version None)
Quarter: 2011Q1

REPORT INFORMATION
  Report Type: 
  Country: None (occurrence: None)
  Receive Date: 20110210
  Receipt Date: 20110125
  Transmission Date: 20110831
  Serious: Yes (Other)
  Sender: FDA-Public Use
  Company Number: DSA_44827_2011

PATIENT
  Age: 58 Year
  Sex: Male

DRUGS (11)
  1. CLOPIDOGREL BISULFATE [Suspect]
     Indication: CORONARY ARTERY DISEASE
     Dosage: (DF)
  2. CLOPIDOGREL BISULFATE [Suspect]
     Indication: ANGINA UNSTABLE
     Dosage: (DF)
  3. HEPARIN SODIUM [Concomitant]
  4. ISOSORBIDE DINITRATE [Concomitant]
  5. METOPROLOL TARTRATE [Concomitant]
  6. HYDROXYCHLOROQUINE [Concomitant]
  7. ASPIRIN [Concomitant]
  8. ATORVASTATIN (ATORVASTATIN ) [Suspect]
     Indication: ANGINA UNSTABLE
     Dosage: (20 MG QD)
  9. ATORVASTATIN (ATORVASTATIN ) [Suspect]
     Indication: CORONARY ARTERY DISEASE
     Dosage: (20 MG QD)
  10. DILTIAZEM HCL [Suspect]
     Indication: PRODUCT USED FOR UNKNOWN INDICATION
     Dosage: (DF)
  11. PREDNISOLONE [Suspect]
     Indication: SYSTEMIC LUPUS ERYTHEMATOSUS
     Dosage: (20 MG QD)

REACTIONS (11)
  - LEUKOPENIA [None]
  - ANGINA UNSTABLE [None]
  - ALANINE AMINOTRANSFERASE INCREASED [None]
  - CORONARY ARTERY DISEASE [None]
  - DRUG INTERACTION [None]
  - APHTHOUS STOMATITIS [None]
  - HEPATOTOXICITY [None]
  - RAYNAUD'S PHENOMENON [None]
  - SYSTEMIC LUPUS ERYTHEMATOSUS [None]
  - MYOGLOBIN BLOOD INCREASED [None]
  - LIVER INJURY [None]
